FAERS Safety Report 9561522 (Version 2)
Quarter: 2013Q4

REPORT INFORMATION
  Report Type: Spontaneous
  Country: BR (occurrence: None)
  Receive Date: 20130925
  Receipt Date: 20131120
  Transmission Date: 20140711
  Serious: Yes (Hospitalization)
  Sender: FDA-Public Use
  Company Number: DSJ-2013-20629

PATIENT
  Age: 74 Year
  Sex: Female
  Weight: 61.5 kg

DRUGS (9)
  1. BENICAR ANLO [Suspect]
     Indication: HYPERTENSION
     Route: 048
     Dates: start: 201305
  2. RIVAROXABAN [Suspect]
     Indication: THROMBOSIS
     Dosage: 20 MG, PER ORAL
     Route: 048
     Dates: start: 201306
  3. GLIMEPIRIDE [Suspect]
     Indication: PRODUCT USED FOR UNKNOWN INDICATION
     Dosage: 4 MG, PER ORAL
     Route: 048
     Dates: start: 20130902, end: 201309
  4. ATENOLOL (ATENOLOL) (ATENOLOL) [Suspect]
     Indication: HYPERTENSION
     Route: 048
     Dates: start: 201305
  5. PHENYTOIN (PHENYTOIN) (PHENYTOIN) [Concomitant]
  6. ARIPIPRAZOLE (ARIPIPRAZOLE) (ARIPIPRAZOLE) [Concomitant]
  7. CLONAZEPAM (CLONAZEPAM) (CLONAZEPAM) [Concomitant]
  8. CHLORPROMAZINE (CHLORPROMAZINE) (CHLORPROMAZINE) [Concomitant]
  9. RANITIDINE (RANITIDINE) (RANITIDINE) [Concomitant]

REACTIONS (10)
  - Asthenia [None]
  - Tremor [None]
  - Drug ineffective [None]
  - Blood pressure systolic decreased [None]
  - Hypoglycaemia [None]
  - Ear pain [None]
  - Influenza [None]
  - Thrombosis [None]
  - Tinnitus [None]
  - Subcutaneous abscess [None]
